FAERS Safety Report 15299592 (Version 2)
Quarter: 2019Q3

REPORT INFORMATION
  Report Type: Report from Study
  Country: ZA (occurrence: ZA)
  Receive Date: 20180821
  Receipt Date: 20190711
  Transmission Date: 20191004
  Serious: Yes (Death, Congenital Anomaly, Other)
  Sender: FDA-Public Use
  Company Number: ZA-BRISTOL-MYERS SQUIBB COMPANY-BMS-2018-077984

PATIENT

DRUGS (2)
  1. WARFARIN SODIUM. [Suspect]
     Active Substance: WARFARIN SODIUM
     Indication: PRODUCT USED FOR UNKNOWN INDICATION
     Dosage: 5 MG, QD
     Route: 064
  2. HEPARIN SODIUM. [Suspect]
     Active Substance: HEPARIN SODIUM
     Indication: PRODUCT USED FOR UNKNOWN INDICATION
     Dosage: UNK
     Route: 064

REACTIONS (11)
  - Death neonatal [Fatal]
  - Peripheral swelling [Unknown]
  - Hypotelorism of orbit [Unknown]
  - Congenital central nervous system anomaly [Unknown]
  - Nasal disorder [Unknown]
  - Dysmorphism [Unknown]
  - Low set ears [Unknown]
  - Skull malformation [Unknown]
  - Spine malformation [Unknown]
  - Foetal warfarin syndrome [Unknown]
  - Foetal exposure during pregnancy [Unknown]
